FAERS Safety Report 24374180 (Version 2)
Quarter: 2025Q2

REPORT INFORMATION
  Report Type: Report from Study
  Country: US (occurrence: US)
  Receive Date: 20240927
  Receipt Date: 20250502
  Transmission Date: 20250717
  Serious: Yes (Other)
  Sender: TAKEDA
  Company Number: US-TAKEDA-2023TUS110586

PATIENT
  Age: 67 Year
  Sex: Female

DRUGS (20)
  1. PONATINIB [Suspect]
     Active Substance: PONATINIB
     Indication: Leukaemia
     Dosage: 15 MILLIGRAM, QD
     Dates: start: 20231113
  2. PONATINIB [Suspect]
     Active Substance: PONATINIB
     Indication: Acute lymphocytic leukaemia (in remission)
     Dosage: 15 MILLIGRAM, QD
  3. PONATINIB [Suspect]
     Active Substance: PONATINIB
     Dosage: 15 MILLIGRAM, QD
  4. ENTRESTO [Concomitant]
     Active Substance: SACUBITRIL\VALSARTAN
     Indication: Cardiac disorder
  5. ENTRESTO [Concomitant]
     Active Substance: SACUBITRIL\VALSARTAN
     Dosage: UNK UNK, BID
     Dates: start: 20240314
  6. JARDIANCE [Concomitant]
     Active Substance: EMPAGLIFLOZIN
  7. FUROSEMIDE [Concomitant]
     Active Substance: FUROSEMIDE
  8. SPIRONOLACTONE [Concomitant]
     Active Substance: SPIRONOLACTONE
  9. VITAMIN D3 [Concomitant]
     Active Substance: CHOLECALCIFEROL
  10. MELATONIN [Concomitant]
     Active Substance: MELATONIN
  11. COMPAZINE [Concomitant]
     Active Substance: PROCHLORPERAZINE MALEATE
  12. METOPROLOL SUCCINATE [Concomitant]
     Active Substance: METOPROLOL SUCCINATE
  13. TUMS [Concomitant]
     Active Substance: CALCIUM CARBONATE
  14. KETOCONAZOLE [Concomitant]
     Active Substance: KETOCONAZOLE
  15. LORATADINE [Concomitant]
     Active Substance: LORATADINE
  16. ASPIRIN [Concomitant]
     Active Substance: ASPIRIN
  17. .GAMMA.-AMINOBUTYRIC ACID [Concomitant]
     Active Substance: .GAMMA.-AMINOBUTYRIC ACID
  18. ELIQUIS [Concomitant]
     Active Substance: APIXABAN
  19. MAGNESIUM [Concomitant]
     Active Substance: MAGNESIUM
  20. METOPROLOL TARTRATE [Concomitant]
     Active Substance: METOPROLOL TARTRATE

REACTIONS (8)
  - Basal cell carcinoma [Unknown]
  - Hair growth abnormal [Not Recovered/Not Resolved]
  - Off label use [Unknown]
  - Product dose omission issue [Unknown]
  - Cardiac disorder [Unknown]
  - Alopecia [Not Recovered/Not Resolved]
  - Dry skin [Unknown]
  - Fatigue [Unknown]

NARRATIVE: CASE EVENT DATE: 20231113
